APPROVED DRUG PRODUCT: FRAGMIN
Active Ingredient: DALTEPARIN SODIUM
Strength: 7,500 IU/0.75ML
Dosage Form/Route: INJECTABLE;INJECTION
Application: N020287 | Product #008
Applicant: PFIZER INC
Approved: Apr 4, 2002 | RLD: No | RS: No | Type: DISCN